FAERS Safety Report 4890733-5 (Version None)
Quarter: 2006Q1

REPORT INFORMATION
  Report Type: 
  Country: None (occurrence: None)
  Receive Date: 20060125
  Receipt Date: 20040302
  Transmission Date: 20060701
  Serious: Yes (Other)
  Sender: FDA-Public Use
  Company Number: US-BRISTOL-MYERS SQUIBB COMPANY-12522207

PATIENT
  Sex: Male

DRUGS (5)
  1. STADOL [Suspect]
     Dosage: DURATION: MORE THAN THREE YEARS
     Route: 045
     Dates: start: 20020105
  2. METHYLPREDNISOLONE [Concomitant]
  3. CARISOPRODOL [Concomitant]
  4. HYDROCODONE + ACETAMINOPHEN [Concomitant]
  5. VIAGRA [Concomitant]

REACTIONS (2)
  - DEPENDENCE [None]
  - DRUG WITHDRAWAL SYNDROME [None]
